FAERS Safety Report 7641095-1 (Version None)
Quarter: 2011Q3

REPORT INFORMATION
  Report Type: 
  Country: None (occurrence: None)
  Receive Date: 20110728
  Receipt Date: 20110718
  Transmission Date: 20111222
  Serious: Yes (Death)
  Sender: FDA-Public Use
  Company Number: IT-NOVOPROD-332093

PATIENT
  Age: 27 Year
  Sex: Male
  Weight: 60 kg

DRUGS (2)
  1. NOVOSEVEN [Suspect]
     Indication: HAEMOPHILIA B WITH ANTI FACTOR IX
     Dosage: UNK
     Route: 065
  2. PROTHROMBINKOMPLEX-KONZENTRAT      /00328501/ [Concomitant]
     Indication: HAEMOPHILIA B WITH ANTI FACTOR IX

REACTIONS (3)
  - DRUG INEFFECTIVE [None]
  - SEPTIC SHOCK [None]
  - HYPERSENSITIVITY [None]
